FAERS Safety Report 5372038-1 (Version None)
Quarter: 2007Q2

REPORT INFORMATION
  Report Type: 
  Country: None (occurrence: None)
  Receive Date: 20070625
  Receipt Date: 20070611
  Transmission Date: 20071010
  Serious: Yes (Death)
  Sender: FDA-Public Use
  Company Number: B0475735A

PATIENT
  Age: 39 Year
  Sex: Female

DRUGS (13)
  1. PARACETAMOL (FORMULATION UNKNOWN) (ACETAMINOPHEN) [Suspect]
  2. CIPROFLOXACIN HCL [Suspect]
  3. OXAZEPAM [Suspect]
  4. LORAZEPAM [Suspect]
  5. TEMAZEPAM [Suspect]
  6. NORDAZEPAM (FORMULATION UNKNOWN) (NORDAZEPAM) [Suspect]
  7. ATROPINE [Suspect]
  8. TOPIRAMATE [Suspect]
  9. DIAZEPAM [Suspect]
  10. CHLORAL HYDRATE (FORMULATION UNKNOWN) (CHLORAL HYDRATE) [Suspect]
  11. DIPHENHYDRAMINE (FORMULATION UNKNOWN) (DIPHENHYDRAMINE) [Suspect]
  12. CLONAZEPAM [Suspect]
  13. ANTIBIOTICS [Concomitant]

REACTIONS (7)
  - ACCIDENTAL OVERDOSE [None]
  - ASTHENIA [None]
  - BACTERIAL INFECTION [None]
  - BODY TEMPERATURE INCREASED [None]
  - INFLUENZA [None]
  - MALAISE [None]
  - POISONING [None]
